FAERS Safety Report 6422455-3 (Version None)
Quarter: 2009Q4

REPORT INFORMATION
  Report Type: 
  Country: None (occurrence: None)
  Receive Date: 20091030
  Receipt Date: 20091023
  Transmission Date: 20100525
  Serious: Yes (Other)
  Sender: FDA-Public Use
  Company Number: US-GENENTECH-291891

PATIENT
  Sex: Female

DRUGS (1)
  1. LUCENTIS [Suspect]
     Indication: MACULAR DEGENERATION
     Dosage: 0.05 UNK, UNK
     Route: 031
     Dates: start: 20090908

REACTIONS (2)
  - HEADACHE [None]
  - SUPRAVENTRICULAR EXTRASYSTOLES [None]
